FAERS Safety Report 19714587 (Version 1)
Quarter: 2021Q3

REPORT INFORMATION
  Report Type: Spontaneous
  Country: FR (occurrence: FR)
  Receive Date: 20210818
  Receipt Date: 20210818
  Transmission Date: 20211014
  Serious: Yes (Hospitalization, Other)
  Sender: FDA-Public Use
  Company Number: FR-SUN PHARMACEUTICAL INDUSTRIES LTD-2021RR-308237

PATIENT
  Age: 67 Year
  Sex: Female
  Weight: 67.7 kg

DRUGS (5)
  1. ATORVASTATIN [Suspect]
     Active Substance: ATORVASTATIN
     Indication: DYSLIPIDAEMIA
     Dosage: 1 DOSAGE FORM, DAILY
     Route: 048
     Dates: start: 20200601, end: 20210318
  2. COVERAM [Concomitant]
     Active Substance: AMLODIPINE\PERINDOPRIL
     Indication: HYPERTENSION
     Dosage: 1 DOSAGE FORM, DAILY
     Route: 048
  3. ESOMEPRAZOLE. [Concomitant]
     Active Substance: ESOMEPRAZOLE MAGNESIUM
     Indication: GASTROOESOPHAGEAL REFLUX DISEASE
     Dosage: 1 DOSAGE FORM, DAILY
     Route: 048
  4. VENTOLINE 0,5 MG/1 ML, SOLUTION INJECTABLE PAR VOIE SOUS?CUTANEE EN... [Concomitant]
     Indication: HYPERSENSITIVITY
     Dosage: 1 DOSAGE FORM, UNK
     Route: 055
  5. GALVUS [Concomitant]
     Active Substance: VILDAGLIPTIN
     Indication: TYPE 2 DIABETES MELLITUS
     Dosage: 2 DOSAGE FORM, DAILY
     Route: 048

REACTIONS (4)
  - Muscle spasms [Recovered/Resolved]
  - Sjogren^s syndrome [Recovered/Resolved]
  - Interstitial lung disease [Not Recovered/Not Resolved]
  - Dry eye [Not Recovered/Not Resolved]

NARRATIVE: CASE EVENT DATE: 2020
